FAERS Safety Report 7607406-8 (Version None)
Quarter: 2011Q3

REPORT INFORMATION
  Report Type: 
  Country: None (occurrence: None)
  Receive Date: 20110713
  Receipt Date: 20110630
  Transmission Date: 20111222
  Serious: Yes (Other)
  Sender: FDA-Public Use
  Company Number: IN-MYLANLABS-2011S1013926

PATIENT
  Age: 25 Year
  Sex: Female

DRUGS (2)
  1. DOTHIEPIN HYDROCHLORIDE [Interacting]
     Indication: DEPRESSION
     Route: 065
  2. SERTRALINE [Suspect]
     Indication: DEPRESSION
     Route: 065

REACTIONS (3)
  - DRUG INTERACTION [None]
  - EXTRAPYRAMIDAL DISORDER [None]
  - HYPOMANIA [None]
